FAERS Safety Report 9631001 (Version 1)
Quarter: 2013Q4

REPORT INFORMATION
  Report Type: Spontaneous
  Country: US (occurrence: None)
  Receive Date: 20131015
  Receipt Date: 20131015
  Transmission Date: 20140711
  Serious: Yes (Other)
  Sender: FDA-Public Use
  Company Number: AUR-APL-2013-08367

PATIENT
  Age: 38 Year
  Sex: Female

DRUGS (2)
  1. ONDANSETRON [Suspect]
     Indication: PROPHYLAXIS OF NAUSEA AND VOMITING
     Dosage: 8 MG, 2 IN 1 D
     Route: 048
  2. CISPLATIN/ALIMTA [Concomitant]

REACTIONS (1)
  - Drug hypersensitivity [None]
